FAERS Safety Report 4680810-6 (Version None)
Quarter: 2005Q2

REPORT INFORMATION
  Report Type: 
  Country: None (occurrence: None)
  Receive Date: 20050603
  Receipt Date: 20050524
  Transmission Date: 20051028
  Serious: Yes (Other)
  Sender: FDA-Public Use
  Company Number: PHBS2005BR07379

PATIENT
  Age: 79 Year
  Sex: Female
  Weight: 64 kg

DRUGS (5)
  1. GLUCOFORMIN [Concomitant]
     Indication: DIABETES MELLITUS
     Dosage: 1 DF, Q12H
     Route: 048
  2. DAONIL [Concomitant]
     Indication: DIABETES MELLITUS
     Dosage: 1 DF, Q12H
  3. PURAN T4 [Concomitant]
     Indication: HYPOTHYROIDISM
     Dosage: 1 DF, QD
     Route: 048
  4. COMBIRON B 12 [Concomitant]
     Indication: VITAMIN SUPPLEMENTATION
     Dosage: 1 DF, QD
  5. FORASEQ [Suspect]
     Indication: BRONCHIECTASIS
     Dosage: 1 DF, Q12H
     Dates: start: 20040524

REACTIONS (3)
  - DYSSTASIA [None]
  - ISCHAEMIA [None]
  - TONGUE PARALYSIS [None]
